FAERS Safety Report 10623548 (Version 3)
Quarter: 2015Q1

REPORT INFORMATION
  Report Type: Report from Study
  Country: JP (occurrence: JP)
  Receive Date: 20141203
  Receipt Date: 20150209
  Transmission Date: 20150720
  Serious: Yes (Hospitalization)
  Sender: FDA-Public Use
  Company Number: JP-PFIZER INC-2014326857

PATIENT
  Age: 71 Year
  Sex: Male
  Weight: 52 kg

DRUGS (3)
  1. TORISEL [Suspect]
     Active Substance: TEMSIROLIMUS
     Indication: METASTATIC RENAL CELL CARCINOMA
     Dosage: 20 MG, WEEKLY
     Route: 041
     Dates: start: 20111220, end: 20120116
  2. TORISEL [Suspect]
     Active Substance: TEMSIROLIMUS
     Dosage: 20 MG, WEEKLY
     Route: 041
     Dates: start: 20120326, end: 20120605
  3. RESTAMIN KOWA [Concomitant]
     Indication: PROPHYLAXIS
     Dosage: 50 MG, 1X/DAY ON EVERY TEMSIROLIMUS ADMINISTRATION DATE
     Route: 048

REACTIONS (2)
  - Cardiac failure acute [Recovering/Resolving]
  - Dyspnoea [Recovering/Resolving]

NARRATIVE: CASE EVENT DATE: 20120514
